FAERS Safety Report 21903968 (Version 1)
Quarter: 2023Q1

REPORT INFORMATION
  Report Type: Spontaneous
  Country: US (occurrence: US)
  Receive Date: 20230124
  Receipt Date: 20230124
  Transmission Date: 20230417
  Serious: Yes (Hospitalization, Other)
  Sender: FDA-Public Use
  Company Number: US-AMGEN-USASP2023008201

PATIENT
  Age: 11 Year
  Sex: Male
  Weight: 38 kg

DRUGS (3)
  1. BLINCYTO [Suspect]
     Active Substance: BLINATUMOMAB
     Indication: B precursor type acute leukaemia
     Dosage: 72 HOUR OF CONTINUOUS INFUSION
     Route: 065
  2. SERTRALINE [Concomitant]
     Active Substance: SERTRALINE HYDROCHLORIDE
     Indication: Depression
     Dosage: UNK
  3. SULFAMETHOXAZOLE\TRIMETHOPRIM [Concomitant]
     Active Substance: SULFAMETHOXAZOLE\TRIMETHOPRIM
     Indication: Antifungal prophylaxis
     Dosage: UNK

REACTIONS (9)
  - Status epilepticus [Recovered/Resolved]
  - Spinal cord compression [Unknown]
  - Cerebral atrophy [Unknown]
  - Intervertebral disc protrusion [Unknown]
  - Gliosis [Unknown]
  - Anaemia [Unknown]
  - Leukopenia [Unknown]
  - Neurotoxicity [Unknown]
  - Encephalopathy [Recovered/Resolved]
